FAERS Safety Report 5774464-5 (Version None)
Quarter: 2008Q2

REPORT INFORMATION
  Report Type: 
  Country: None (occurrence: None)
  Receive Date: 20080616
  Receipt Date: 20080602
  Transmission Date: 20081010
  Serious: Yes (Hospitalization)
  Sender: FDA-Public Use
  Company Number: SE-GENENTECH-262537

PATIENT
  Sex: Female

DRUGS (15)
  1. MABTHERA [Suspect]
     Indication: RHEUMATOID ARTHRITIS
     Dosage: 100 MG, UNK
     Route: 042
     Dates: start: 20080522, end: 20080523
  2. DELTISON [Concomitant]
     Indication: DRUG USE FOR UNKNOWN INDICATION
     Dates: start: 20080522, end: 20080522
  3. CALCICHEW D3 [Concomitant]
     Indication: DRUG USE FOR UNKNOWN INDICATION
  4. KALEORID [Concomitant]
     Indication: DRUG USE FOR UNKNOWN INDICATION
  5. IMDUR [Concomitant]
     Indication: DRUG USE FOR UNKNOWN INDICATION
  6. LASIX [Concomitant]
     Indication: DRUG USE FOR UNKNOWN INDICATION
  7. MEDICATION (UNK INGREDIENT) [Concomitant]
     Indication: DRUG USE FOR UNKNOWN INDICATION
  8. COZAAR [Concomitant]
     Indication: DRUG USE FOR UNKNOWN INDICATION
  9. MEDICATION (UNK INGREDIENT) [Concomitant]
  10. MEDICATION (UNK INGREDIENT) [Concomitant]
  11. SPIRONOLAKTON [Concomitant]
     Indication: DRUG USE FOR UNKNOWN INDICATION
  12. METOPROLOL [Concomitant]
     Indication: DRUG USE FOR UNKNOWN INDICATION
  13. SENDOXAN [Concomitant]
     Indication: DRUG USE FOR UNKNOWN INDICATION
  14. CETIRIZINE HYDROCHLORIDE [Concomitant]
     Indication: DRUG USE FOR UNKNOWN INDICATION
  15. ALVEDON [Concomitant]
     Indication: DRUG USE FOR UNKNOWN INDICATION

REACTIONS (1)
  - THROMBOCYTOPENIA [None]
